FAERS Safety Report 8625307-3 (Version None)
Quarter: 2012Q3

REPORT INFORMATION
  Report Type: 
  Country: None (occurrence: None)
  Receive Date: 20120827
  Receipt Date: 20120816
  Transmission Date: 20120928
  Serious: Yes (Other)
  Sender: FDA-Public Use
  Company Number: US-ASTRAZENECA-2011SE46957

PATIENT
  Age: 78 Year
  Sex: Female

DRUGS (4)
  1. EAR DROPS [Concomitant]
  2. ZITHROMAX [Concomitant]
  3. PRILOSEC [Suspect]
     Route: 048
     Dates: start: 19990101
  4. NEXIUM [Suspect]
     Route: 048

REACTIONS (11)
  - MIDDLE EAR DISORDER [None]
  - ROAD TRAFFIC ACCIDENT [None]
  - RENAL FAILURE ACUTE [None]
  - DEVICE EXPULSION [None]
  - LIMB INJURY [None]
  - CATARACT [None]
  - CHRONIC SINUSITIS [None]
  - CONTUSION [None]
  - STERNAL FRACTURE [None]
  - INFECTION [None]
  - DRUG INTOLERANCE [None]
